FAERS Safety Report 5653650-9 (Version None)
Quarter: 2008Q1

REPORT INFORMATION
  Report Type: 
  Country: None (occurrence: None)
  Receive Date: 20080131
  Receipt Date: 20071008
  Transmission Date: 20080703
  Serious: No
  Sender: FDA-Public Use
  Company Number: US200710002283

PATIENT
  Age: 60 Year
  Sex: Female
  Weight: 74.8 kg

DRUGS (5)
  1. BYETTA [Suspect]
     Indication: INSULIN-REQUIRING TYPE 2 DIABETES MELLITUS
     Dosage: 5 UG, DAILY (1/D), SUBCUTANEOUS ; 5 UG, 2/D ; 10 UG, 2/D, SUBCUTANEOUS ; 10 UG, DAILY (1/D)
     Route: 058
     Dates: start: 20070601, end: 20070101
  2. BYETTA [Suspect]
     Indication: INSULIN-REQUIRING TYPE 2 DIABETES MELLITUS
     Dosage: 5 UG, DAILY (1/D), SUBCUTANEOUS ; 5 UG, 2/D ; 10 UG, 2/D, SUBCUTANEOUS ; 10 UG, DAILY (1/D)
     Route: 058
     Dates: start: 20070601, end: 20070701
  3. BYETTA [Suspect]
     Indication: INSULIN-REQUIRING TYPE 2 DIABETES MELLITUS
     Dosage: 5 UG, DAILY (1/D), SUBCUTANEOUS ; 5 UG, 2/D ; 10 UG, 2/D, SUBCUTANEOUS ; 10 UG, DAILY (1/D)
     Route: 058
     Dates: start: 20070701
  4. BYETTA [Suspect]
     Indication: INSULIN-REQUIRING TYPE 2 DIABETES MELLITUS
     Dosage: 5 UG, DAILY (1/D), SUBCUTANEOUS ; 5 UG, 2/D ; 10 UG, 2/D, SUBCUTANEOUS ; 10 UG, DAILY (1/D)
     Route: 058
     Dates: start: 20070901
  5. LANTUS [Concomitant]

REACTIONS (6)
  - DECREASED APPETITE [None]
  - INSOMNIA [None]
  - NAUSEA [None]
  - VERTIGO [None]
  - VOMITING [None]
  - WEIGHT DECREASED [None]
